FAERS Safety Report 19643047 (Version 5)
Quarter: 2021Q4

REPORT INFORMATION
  Report Type: Report from Study
  Country: US (occurrence: US)
  Receive Date: 20210731
  Receipt Date: 20211025
  Transmission Date: 20220303
  Serious: No
  Sender: FDA-Public Use
  Company Number: NVSC2021US160242

PATIENT
  Sex: Female

DRUGS (2)
  1. TABRECTA [Suspect]
     Active Substance: CAPMATINIB
     Indication: Product used for unknown indication
     Route: 048
  2. TABRECTA [Suspect]
     Active Substance: CAPMATINIB
     Route: 048

REACTIONS (8)
  - Crying [Unknown]
  - Insomnia [Unknown]
  - Pain in extremity [Unknown]
  - Cognitive disorder [Unknown]
  - Malaise [Unknown]
  - Fatigue [Unknown]
  - Urticaria [Unknown]
  - Alopecia [Unknown]
